FAERS Safety Report 22335942 (Version 1)
Quarter: 2023Q2

REPORT INFORMATION
  Report Type: Spontaneous
  Country: US (occurrence: None)
  Receive Date: 20230518
  Receipt Date: 20230518
  Transmission Date: 20230722
  Serious: No
  Sender: FDA-Public Use
  Company Number: US-ROCHE-3156306

PATIENT
  Sex: Female
  Weight: 88.53 kg

DRUGS (1)
  1. ACTEMRA [Suspect]
     Active Substance: TOCILIZUMAB
     Indication: Rheumatoid arthritis
     Dosage: ONGOING: YES
     Route: 058

REACTIONS (3)
  - Wrong technique in product usage process [Unknown]
  - Exposure via skin contact [Unknown]
  - No adverse event [Unknown]
